FAERS Safety Report 17074511 (Version 1)
Quarter: 2019Q4

REPORT INFORMATION
  Report Type: Spontaneous
  Country: CO (occurrence: CO)
  Receive Date: 20191126
  Receipt Date: 20191126
  Transmission Date: 20200122
  Serious: Yes (Hospitalization)
  Sender: FDA-Public Use
  Company Number: CO-AUROBINDO-AUR-APL-2019-033383

PATIENT
  Age: 45 Year
  Sex: Male

DRUGS (3)
  1. FOLOTYN [Suspect]
     Active Substance: PRALATREXATE
     Dosage: UNK (LAST CYCLE 2 WEEK 6)
     Route: 065
     Dates: end: 20190626
  2. FOLOTYN [Suspect]
     Active Substance: PRALATREXATE
     Indication: PERIPHERAL T-CELL LYMPHOMA UNSPECIFIED
     Dosage: 54 MILLIGRAM, EVERY 15 DAYS (CYCLE 2 WEEK 3)
     Route: 042
     Dates: start: 20190305, end: 20190507
  3. FOLOTYN [Suspect]
     Active Substance: PRALATREXATE
     Dosage: UNK (LAST CYCLE 2 WEEK 5)
     Route: 065
     Dates: end: 20190612

REACTIONS (1)
  - Mucosal inflammation [Recovered/Resolved]

NARRATIVE: CASE EVENT DATE: 20190507
